FAERS Safety Report 5406850-7 (Version None)
Quarter: 2007Q3

REPORT INFORMATION
  Report Type: 
  Country: None (occurrence: None)
  Receive Date: 20070802
  Receipt Date: 20070223
  Transmission Date: 20080115
  Serious: Yes (Hospitalization)
  Sender: FDA-Public Use
  Company Number: 865#9#2007-00002

PATIENT
  Age: 68 Year
  Sex: Female

DRUGS (19)
  1. ROTIGOTINE-30CM? -13.5MG-PATCH (ROTIGOTINE) [Suspect]
     Indication: PARKINSON'S DISEASE
     Dosage: SEE IMAGE
     Route: 062
     Dates: start: 20070201, end: 20070207
  2. ROTIGOTINE-30CM? -13.5MG-PATCH (ROTIGOTINE) [Suspect]
     Indication: PARKINSON'S DISEASE
     Dosage: SEE IMAGE
     Route: 062
     Dates: start: 20070208, end: 20070212
  3. ROTIGOTINE-30CM? -13.5MG-PATCH (ROTIGOTINE) [Suspect]
     Indication: PARKINSON'S DISEASE
     Dosage: SEE IMAGE
     Route: 062
     Dates: start: 20070213, end: 20070221
  4. ROTIGOTINE-30CM? -13.5MG-PATCH (ROTIGOTINE) [Suspect]
     Indication: PARKINSON'S DISEASE
     Dosage: SEE IMAGE
     Route: 062
     Dates: start: 20070222
  5. LOXOPROFEN SODIUM (LOXOPROFEN SODIUM) [Suspect]
     Dosage: 180 MG/24H (180 MG/24H 1 IN 1 DAY (S)) ORAL
     Route: 048
     Dates: start: 20070208, end: 20070219
  6. SERRAPEPTASE (SERRAPEPTASE) [Suspect]
     Dosage: 30 MG/24H ORAL
     Route: 048
     Dates: start: 20070208, end: 20070219
  7. EPERISONE HYDROCHLORIDE (EPERISONE HYDROCHLORIDE) [Suspect]
     Dosage: 150 MG/24H ORAL
     Route: 048
     Dates: start: 20070208, end: 20070219
  8. METHIMAZOLE [Concomitant]
  9. ALFACALCIDOL (ALFACALCIDOL) [Concomitant]
  10. CALCIUM L-ASPARTATE (ASPARTATE CALCIUM) [Concomitant]
  11. SELEGILINE HYDROCHLORIDE (SELEGILINE HYDROCHLORIDE) [Concomitant]
  12. TEPRENONE (TEPRENONE) [Concomitant]
  13. FELBINAC (FELBINAC) [Concomitant]
  14. RINGERS INJECTION IN PLASTIC CONTAINER [Concomitant]
  15. DOMPERIDONE (DOMPERIDONE) [Concomitant]
  16. OMEPRAZOLE [Concomitant]
  17. LANSOPRAZOLE [Concomitant]
  18. SODIUM FERROUS CITRATE (SODIUM FERROUS CITRATE) [Concomitant]
  19. LEVODOPA-CARBIDOPA (CARBIDOPA, LEVODOPA) [Concomitant]

REACTIONS (8)
  - ANAEMIA [None]
  - ANOREXIA [None]
  - DIZZINESS POSTURAL [None]
  - GASTRIC ULCER [None]
  - LABELLED DRUG-DRUG INTERACTION MEDICATION ERROR [None]
  - MELAENA [None]
  - NAUSEA [None]
  - VOMITING [None]
